FAERS Safety Report 4628413-3 (Version None)
Quarter: 2005Q2

REPORT INFORMATION
  Report Type: 
  Country: None (occurrence: None)
  Receive Date: 20050401
  Receipt Date: 20050319
  Transmission Date: 20051028
  Serious: Yes (Other)
  Sender: FDA-Public Use
  Company Number: 2005036062

PATIENT
  Age: 20 Month
  Sex: Female
  Weight: 11.3399 kg

DRUGS (3)
  1. ZITHROMAX [Suspect]
     Indication: PHARYNGITIS STREPTOCOCCAL
     Dosage: 1.5 TEASPOON (100 MG), ORAL
     Route: 048
     Dates: start: 20050211, end: 20050220
  2. ZITHROMAX [Suspect]
     Indication: PYREXIA
     Dosage: 1.5 TEASPOON (100 MG), ORAL
     Route: 048
     Dates: start: 20050211, end: 20050220
  3. TYLENOL [Concomitant]

REACTIONS (11)
  - ABNORMAL BEHAVIOUR [None]
  - BLOOD PRESSURE SYSTOLIC INCREASED [None]
  - DYSPNOEA [None]
  - INFLUENZA [None]
  - LETHARGY [None]
  - PHARYNGEAL ERYTHEMA [None]
  - PURULENCE [None]
  - PYREXIA [None]
  - RESTLESSNESS [None]
  - TACHYCARDIA [None]
  - TACHYPNOEA [None]
